FAERS Safety Report 8386534-6 (Version None)
Quarter: 2012Q2

REPORT INFORMATION
  Report Type: 
  Country: None (occurrence: None)
  Receive Date: 20120525
  Receipt Date: 20110517
  Transmission Date: 20120825
  Serious: No
  Sender: FDA-Public Use
  Company Number: US-GLAXOSMITHKLINE-A0927624A

PATIENT
  Age: 36 Year
  Sex: Female

DRUGS (3)
  1. THYROID MEDICATION [Concomitant]
  2. VERAMYST [Suspect]
     Indication: RHINITIS ALLERGIC
     Dosage: 2PUFF PER DAY
     Route: 045
  3. MEDROL [Concomitant]

REACTIONS (1)
  - MUSCULOSKELETAL STIFFNESS [None]
